FAERS Safety Report 12179236 (Version 1)
Quarter: 2016Q1

REPORT INFORMATION
  Report Type: Spontaneous
  Country: US (occurrence: None)
  Receive Date: 20160314
  Receipt Date: 20160314
  Transmission Date: 20160526
  Serious: Yes (Other)
  Sender: FDA-Public Use
  Company Number: None

PATIENT
  Age: 26 Year
  Sex: Female
  Weight: 77.11 kg

DRUGS (3)
  1. IMPLANON [Suspect]
     Active Substance: ETONOGESTREL
     Indication: CONTRACEPTION
     Dates: start: 20150121, end: 20160313
  2. TRAMADOL. [Concomitant]
     Active Substance: TRAMADOL
  3. ALBUTERAL INHALER [Concomitant]

REACTIONS (16)
  - Headache [None]
  - Back pain [None]
  - Influenza like illness [None]
  - Vision blurred [None]
  - Ear pain [None]
  - Crying [None]
  - Dysuria [None]
  - Hyperhidrosis [None]
  - Feeling hot [None]
  - Insomnia [None]
  - Fatigue [None]
  - Eye pain [None]
  - Balance disorder [None]
  - Asthenia [None]
  - Pyrexia [None]
  - Urine analysis abnormal [None]

NARRATIVE: CASE EVENT DATE: 20160121
